FAERS Safety Report 4757180-8 (Version None)
Quarter: 2005Q3

REPORT INFORMATION
  Report Type: 
  Country: None (occurrence: None)
  Receive Date: 20050831
  Receipt Date: 20050720
  Transmission Date: 20060218
  Serious: Yes (Other)
  Sender: FDA-Public Use
  Company Number: PHEH2005US08088

PATIENT
  Age: 67 Year
  Sex: Female
  Weight: 73 kg

DRUGS (10)
  1. ZELNORM [Suspect]
     Indication: CONSTIPATION
     Dosage: 6 MG, BID
     Route: 048
     Dates: start: 20050714, end: 20050701
  2. ZELNORM [Suspect]
     Dosage: 3 MG, BID
     Route: 048
     Dates: start: 20050701
  3. PROTONIX [Concomitant]
     Indication: GASTROOESOPHAGEAL REFLUX DISEASE
     Dosage: 40 MG, UNK
  4. CALCIUM GLUCONATE [Concomitant]
     Dosage: 1200 MG, UNK
  5. MULTIVIT [Concomitant]
  6. GAS-X [Concomitant]
  7. GLYCERIN SUPPOSITORIES [Concomitant]
     Indication: HAEMORRHOIDS
  8. PRILOSEC [Concomitant]
     Indication: GASTROOESOPHAGEAL REFLUX DISEASE
     Dosage: 20 MG, QD
  9. ATIVAN [Concomitant]
     Indication: BACK PAIN
  10. ARTIFICIAL TEARS [Concomitant]
     Indication: DRY EYE

REACTIONS (4)
  - ABDOMINAL DISTENSION [None]
  - CONDITION AGGRAVATED [None]
  - FAECES HARD [None]
  - HAEMATOCHEZIA [None]
